FAERS Safety Report 7343669-4 (Version None)
Quarter: 2011Q1

REPORT INFORMATION
  Report Type: 
  Country: None (occurrence: None)
  Receive Date: 20110310
  Receipt Date: 20100921
  Transmission Date: 20110831
  Serious: No
  Sender: FDA-Public Use
  Company Number: A0882313A

PATIENT
  Age: 23 Year
  Sex: Male

DRUGS (1)
  1. NICORETTE [Suspect]
     Dates: start: 20100920, end: 20100920

REACTIONS (2)
  - OROPHARYNGEAL PAIN [None]
  - NAUSEA [None]
